FAERS Safety Report 4692878-1 (Version None)
Quarter: 2005Q2

REPORT INFORMATION
  Report Type: 
  Country: None (occurrence: None)
  Receive Date: 20050615
  Receipt Date: 20050601
  Transmission Date: 20051028
  Serious: Yes (Hospitalization, Other)
  Sender: FDA-Public Use
  Company Number: 2005-00540

PATIENT
  Age: 48 Year
  Sex: Female

DRUGS (13)
  1. VELCADE [Suspect]
     Indication: MULTIPLE MYELOMA
     Dosage: 1.30 MG/M2, INTRAVENOUS
     Route: 042
     Dates: start: 20041220
  2. NEURONTIN [Concomitant]
  3. LIPITOR [Concomitant]
  4. ARANESP [Concomitant]
  5. CLARITIN [Concomitant]
  6. FRAGMIN [Concomitant]
  7. BEHEPAN (CYANOCOBALAMIN) [Concomitant]
  8. LEVAXIN (LEVOTHYROXINE SODIUM) [Concomitant]
  9. ASPIRIN [Concomitant]
  10. COZAAR [Concomitant]
  11. PANTOPRAZOLE SODIUM [Concomitant]
  12. METOPROLOL TARTRATE [Concomitant]
  13. ALLOPURINOL [Concomitant]

REACTIONS (2)
  - ERYTHEMA MULTIFORME [None]
  - VASCULITIS [None]
